FAERS Safety Report 8008394-5 (Version None)
Quarter: 2011Q4

REPORT INFORMATION
  Report Type: 
  Country: None (occurrence: None)
  Receive Date: 20111227
  Receipt Date: 20111219
  Transmission Date: 20120403
  Serious: Yes (Hospitalization)
  Sender: FDA-Public Use
  Company Number: ES-TEVA-314605ISR

PATIENT
  Age: 36 Year
  Sex: Female

DRUGS (2)
  1. IBUPROFEN [Suspect]
     Indication: EAR PAIN
  2. IBUPROFEN [Suspect]
     Indication: MYALGIA
     Route: 048

REACTIONS (1)
  - ENCEPHALITIS ALLERGIC [None]
